FAERS Safety Report 5589465-X (Version None)
Quarter: 2008Q1

REPORT INFORMATION
  Report Type: 
  Country: None (occurrence: None)
  Receive Date: 20080109
  Receipt Date: 20071224
  Transmission Date: 20080703
  Serious: Yes (Hospitalization)
  Sender: FDA-Public Use
  Company Number: DSA_31105_2007

PATIENT
  Sex: Male

DRUGS (2)
  1. TAVOR [Suspect]
     Dosage: (2 MG 1X ORAL)
     Route: 048
     Dates: start: 20071222, end: 20071222
  2. AMISULPRIDE                    (AMISULPRIDE) [Suspect]
     Dosage: (ORAL)
     Route: 048
     Dates: start: 20071222, end: 20071222

REACTIONS (3)
  - DRUG ABUSE [None]
  - MALAISE [None]
  - PANIC REACTION [None]
